FAERS Safety Report 8218416-4 (Version None)
Quarter: 2012Q1

REPORT INFORMATION
  Report Type: 
  Country: None (occurrence: None)
  Receive Date: 20120319
  Receipt Date: 20120314
  Transmission Date: 20120608
  Serious: Yes (Hospitalization)
  Sender: FDA-Public Use
  Company Number: NL-AMGEN-NLDSP2012013754

PATIENT
  Age: 47 Year
  Sex: Female

DRUGS (4)
  1. NEULASTA [Suspect]
     Indication: CHEMOTHERAPY
     Dosage: 6 MG, Q3WK
     Route: 058
     Dates: start: 20111229
  2. OMEPRAZOLE [Concomitant]
  3. DEXAMETHASONE [Concomitant]
  4. ANTINEOPLASTIC AGENTS [Concomitant]

REACTIONS (2)
  - PAIN [None]
  - MUSCLE SPASMS [None]
